FAERS Safety Report 23552411 (Version 1)
Quarter: 2024Q1

REPORT INFORMATION
  Report Type: Report from Study
  Country: CO (occurrence: CO)
  Receive Date: 20240222
  Receipt Date: 20240222
  Transmission Date: 20240410
  Serious: Yes (Other)
  Sender: FDA-Public Use
  Company Number: CO-002147023-NVSC2024CO037205

PATIENT
  Age: 22 Year
  Sex: Female
  Weight: 64 kg

DRUGS (1)
  1. OFATUMUMAB [Suspect]
     Active Substance: OFATUMUMAB
     Indication: Multiple sclerosis
     Dosage: 20 MG (CHARGING DOSE, DAYS 1, 7 AND 14 AND MONTHLY CONTINUITY)
     Route: 058
     Dates: start: 20240212

REACTIONS (3)
  - Choking [Unknown]
  - Chills [Unknown]
  - Pyrexia [Unknown]

NARRATIVE: CASE EVENT DATE: 20240212
